FAERS Safety Report 9308419 (Version 3)
Quarter: 2013Q4

REPORT INFORMATION
  Report Type: Report from Study
  Country: US (occurrence: US)
  Receive Date: 20130524
  Receipt Date: 20131002
  Transmission Date: 20140711
  Serious: Yes (Hospitalization, Other)
  Sender: FDA-Public Use
  Company Number: US-ALEXION-A201301123

PATIENT
  Age: 10 Year
  Sex: Female
  Weight: 30 kg

DRUGS (6)
  1. SOLIRIS [Suspect]
     Indication: HAEMOLYTIC URAEMIC SYNDROME
     Dosage: 600 MG, UNK
     Dates: start: 20130319, end: 20130319
  2. SOLIRIS [Suspect]
     Dosage: 900 MG, UNK
     Route: 042
     Dates: start: 20130325, end: 20130506
  3. SOLIRIS [Suspect]
     Dosage: 1,200 MG, UNK
     Route: 042
     Dates: start: 20130508, end: 20130508
  4. SOLIRIS [Suspect]
     Dosage: 900 MG, UNK
     Route: 042
     Dates: start: 20130510, end: 20130517
  5. SOLIRIS [Suspect]
     Dosage: 1,200 MG, UNK
     Route: 042
     Dates: start: 20130520, end: 20130527
  6. SOLIRIS [Suspect]
     Dosage: 900 MG, UNK
     Route: 042
     Dates: start: 20130529, end: 20130531

REACTIONS (17)
  - Pericardial effusion [Unknown]
  - Pleural effusion [Unknown]
  - Renal failure [Unknown]
  - Status epilepticus [Recovered/Resolved]
  - Graft versus host disease [Unknown]
  - Pancytopenia [Unknown]
  - Stem cell transplant [Unknown]
  - Haemolytic anaemia [Unknown]
  - Thrombocytopenia [Unknown]
  - Drug ineffective [Unknown]
  - Ascites [Unknown]
  - Drug level decreased [Recovered/Resolved]
  - Nausea [Unknown]
  - Abdominal pain [Unknown]
  - Decreased appetite [Unknown]
  - Constipation [Unknown]
  - Dyspepsia [Unknown]
